FAERS Safety Report 23554220 (Version 1)
Quarter: 2024Q1

REPORT INFORMATION
  Report Type: Report from Study
  Country: IT (occurrence: IT)
  Receive Date: 20240222
  Receipt Date: 20240222
  Transmission Date: 20240410
  Serious: Yes (Hospitalization)
  Sender: FDA-Public Use
  Company Number: None

PATIENT
  Age: 51 Year
  Sex: Male

DRUGS (1)
  1. AMOXICILLIN\CLAVULANIC ACID [Suspect]
     Active Substance: AMOXICILLIN\CLAVULANIC ACID
     Indication: Product used for unknown indication
     Dosage: DOSAGE: 1?UNIT OF MEASUREMENT: GRAMS?ADMINISTRATION FREQUENCY: TOTAL
     Route: 048
     Dates: start: 20231031, end: 20231031

REACTIONS (5)
  - Palatal oedema [Recovered/Resolved]
  - Malaise [Recovered/Resolved]
  - Macroglossia [Recovered/Resolved]
  - Hypoxia [Recovered/Resolved]
  - Vomiting [Recovered/Resolved]

NARRATIVE: CASE EVENT DATE: 20231031
